FAERS Safety Report 25637749 (Version 1)
Quarter: 2025Q3

REPORT INFORMATION
  Report Type: Spontaneous
  Country: US (occurrence: US)
  Receive Date: 20250804
  Receipt Date: 20250804
  Transmission Date: 20251020
  Serious: Yes (Other)
  Sender: COOPERSURGICAL
  Company Number: US-COOPERSURGICAL, INC.-2025CPS005745

PATIENT
  Age: 32 Year
  Sex: Female
  Weight: 54.422 kg

DRUGS (1)
  1. PARAGARD T 380A [Suspect]
     Active Substance: COPPER
     Indication: Contraception
     Route: 015
     Dates: start: 20170424

REACTIONS (13)
  - Reproductive complication associated with device [Not Recovered/Not Resolved]
  - Device breakage [Not Recovered/Not Resolved]
  - Foreign body in reproductive tract [Not Recovered/Not Resolved]
  - Complication of device removal [Not Recovered/Not Resolved]
  - Embedded device [Not Recovered/Not Resolved]
  - Emotional distress [Not Recovered/Not Resolved]
  - Anxiety [Unknown]
  - Pain [Not Recovered/Not Resolved]
  - Muscle spasms [Not Recovered/Not Resolved]
  - Abnormal uterine bleeding [Not Recovered/Not Resolved]
  - Intermenstrual bleeding [Not Recovered/Not Resolved]
  - Menstrual disorder [Not Recovered/Not Resolved]
  - Pelvic pain [Unknown]

NARRATIVE: CASE EVENT DATE: 20250127
